FAERS Safety Report 5567029-1 (Version None)
Quarter: 2007Q4

REPORT INFORMATION
  Report Type: 
  Country: None (occurrence: None)
  Receive Date: 20071218
  Receipt Date: 20071218
  Transmission Date: 20080405
  Serious: No
  Sender: FDA-Public Use
  Company Number: None

PATIENT
  Age: 16 Year
  Sex: Male
  Weight: 71.6683 kg

DRUGS (6)
  1. ARIPIPRAZOLE [Suspect]
     Dosage: 2.5 MG PO
     Route: 048
  2. OMEPRAZOLE [Suspect]
     Dosage: 20MG PO
     Route: 048
  3. RANITIDINE HCL [Concomitant]
  4. CLOTRIMAZOLE [Concomitant]
  5. RISPERIDONE [Concomitant]
  6. QUETIAPINE [Concomitant]

REACTIONS (3)
  - RASH ERYTHEMATOUS [None]
  - RASH PRURITIC [None]
  - URTICARIA [None]
